FAERS Safety Report 5254008-7 (Version None)
Quarter: 2007Q1

REPORT INFORMATION
  Report Type: 
  Country: None (occurrence: None)
  Receive Date: 20061201
  Receipt Date: 20060915
  Transmission Date: 20070707
  Serious: Yes (Hospitalization)
  Sender: FDA-Public Use
  Company Number: 2006PV020296

PATIENT
  Age: 58 Year
  Sex: Female
  Weight: 114.3065 kg

DRUGS (8)
  1. BYETTA [Suspect]
     Indication: DIABETES MELLITUS NON-INSULIN-DEPENDENT
     Dosage: SEE IMAGE
     Route: 058
     Dates: start: 20060101, end: 20060101
  2. BYETTA [Suspect]
     Indication: DIABETES MELLITUS NON-INSULIN-DEPENDENT
     Dosage: SEE IMAGE
     Route: 058
     Dates: start: 20060101
  3. GLUCOPHAGE [Concomitant]
  4. GLYBURIDE [Concomitant]
  5. DILTIAZEM [Concomitant]
  6. DIOVAN [Concomitant]
  7. ALLEGRA [Concomitant]
  8. LIPITOR [Concomitant]

REACTIONS (3)
  - NAUSEA [None]
  - VOMITING [None]
  - WEIGHT DECREASED [None]
